FAERS Safety Report 19499065 (Version 2)
Quarter: 2021Q3

REPORT INFORMATION
  Report Type: Spontaneous
  Country: ES (occurrence: ES)
  Receive Date: 20210706
  Receipt Date: 20210715
  Transmission Date: 20211014
  Serious: Yes (Other)
  Sender: FDA-Public Use
  Company Number: ES-ASTRAZENECA-2021A575238

PATIENT
  Sex: Female

DRUGS (2)
  1. FULVESTRANT. [Suspect]
     Active Substance: FULVESTRANT
     Indication: BREAST CANCER METASTATIC
     Dosage: INITIAL DOSE 125 MG DAY 1 TO 21 EVERY 28 DAYS
     Route: 030
     Dates: start: 201906
  2. IBRANCE [Suspect]
     Active Substance: PALBOCICLIB
     Indication: BREAST CANCER METASTATIC
     Dosage: INITIAL DOSE 125 MG DAY 1 TO 21 EVERY 28 DAYS
     Route: 065
     Dates: start: 201906

REACTIONS (2)
  - Neutropenia [Unknown]
  - Neoplasm progression [Unknown]
